FAERS Safety Report 15497181 (Version 1)
Quarter: 2018Q4

REPORT INFORMATION
  Report Type: Spontaneous
  Country: US (occurrence: US)
  Receive Date: 20181005
  Receipt Date: 20181005
  Transmission Date: 20190205
  Serious: Yes (Disabling)
  Sender: FDA-Public Use
  Company Number: None

PATIENT
  Age: 38 Year
  Sex: Male
  Weight: 99 kg

DRUGS (9)
  1. HYDROXYZINE PAMOATE 25MG [Concomitant]
     Active Substance: HYDROXYZINE PAMOATE
  2. MELATONIN 6MG [Concomitant]
  3. PHENAZOPYRIDINE (AZO URINARY PAIN RELIEF) ORAL 97.5 MG TAB (2 TABS) [Concomitant]
  4. LOPERAMIDE 4MG [Concomitant]
  5. CIPROFLOXACIN. [Concomitant]
     Active Substance: CIPROFLOXACIN
  6. TRAZODONE [Suspect]
     Active Substance: TRAZODONE HYDROCHLORIDE
     Indication: INSOMNIA
     Route: 048
  7. LISINOPRIL. [Concomitant]
     Active Substance: LISINOPRIL
  8. LEVOTHYROXINE 50MCG [Concomitant]
     Active Substance: LEVOTHYROXINE
  9. LIBRIUM 25MG [Concomitant]

REACTIONS (4)
  - Painful erection [None]
  - Erectile dysfunction [None]
  - Priapism [None]
  - Pain [None]

NARRATIVE: CASE EVENT DATE: 20181004
